FAERS Safety Report 16559034 (Version 2)
Quarter: 2019Q3

REPORT INFORMATION
  Report Type: Report from Study
  Country: CA (occurrence: CA)
  Receive Date: 20190711
  Receipt Date: 20190715
  Transmission Date: 20191004
  Serious: Yes (Other)
  Sender: FDA-Public Use
  Company Number: CA-JNJFOC-20190630591

PATIENT
  Age: 57 Year
  Sex: Male
  Weight: 111.3 kg

DRUGS (1)
  1. TREMFYA [Suspect]
     Active Substance: GUSELKUMAB
     Indication: PSORIASIS
     Dosage: LATEST INJECTION WAS ON 21-JUN-2019
     Route: 058
     Dates: start: 20190604

REACTIONS (3)
  - Sinusitis [Unknown]
  - Influenza like illness [Not Recovered/Not Resolved]
  - Respiratory tract infection [Not Recovered/Not Resolved]

NARRATIVE: CASE EVENT DATE: 20190621
